FAERS Safety Report 4388902-6 (Version None)
Quarter: 2004Q2

REPORT INFORMATION
  Report Type: 
  Country: None (occurrence: None)
  Receive Date: 20040628
  Receipt Date: 20040611
  Transmission Date: 20050107
  Serious: Yes (Life-Threatening, Hospitalization)
  Sender: FDA-Public Use
  Company Number: JP-SHR-03-003925

PATIENT
  Age: 65 Year
  Sex: Male

DRUGS (2)
  1. BETAFERON (INTERFERON BETA - 1B) INJECTION [Suspect]
     Indication: MULTIPLE SCLEROSIS
     Dosage: SEE IMAGE
     Route: 058
     Dates: start: 20030112, end: 20030112
  2. BETAFERON (INTERFERON BETA - 1B) INJECTION [Suspect]
     Indication: MULTIPLE SCLEROSIS
     Dosage: SEE IMAGE
     Route: 058
     Dates: start: 20030114, end: 20030310

REACTIONS (6)
  - ACUTE RESPIRATORY FAILURE [None]
  - BLOOD SODIUM DECREASED [None]
  - DEPRESSED LEVEL OF CONSCIOUSNESS [None]
  - DRUG ERUPTION [None]
  - PNEUMONIA KLEBSIELLA [None]
  - PYREXIA [None]
